FAERS Safety Report 4607219-5 (Version None)
Quarter: 2005Q1

REPORT INFORMATION
  Report Type: 
  Country: None (occurrence: None)
  Receive Date: 20050310
  Receipt Date: 20050223
  Transmission Date: 20050727
  Serious: Yes (Hospitalization)
  Sender: FDA-Public Use
  Company Number: 2004BI002239

PATIENT
  Age: 38 Year
  Sex: Female

DRUGS (7)
  1. AVONEX [Suspect]
     Indication: MULTIPLE SCLEROSIS
     Dosage: 30 UG;BIW;IM
     Route: 030
     Dates: start: 19990501
  2. AVONEX [Suspect]
     Indication: MULTIPLE SCLEROSIS
     Dosage: 30 UG;QW;IM
     Route: 030
  3. TOPAMAX [Concomitant]
  4. SERZONE [Concomitant]
  5. FUROSEMIDE [Concomitant]
  6. BACLOFEN [Concomitant]
  7. SYNTHROID [Concomitant]

REACTIONS (3)
  - DIFFICULTY IN WALKING [None]
  - MULTIPLE SCLEROSIS RELAPSE [None]
  - NEUROGENIC BOWEL [None]
